FAERS Safety Report 10867880 (Version 1)
Quarter: 2015Q1

REPORT INFORMATION
  Report Type: Spontaneous
  Country: IT (occurrence: IT)
  Receive Date: 20150225
  Receipt Date: 20150225
  Transmission Date: 20150721
  Serious: Yes (Other)
  Sender: FDA-Public Use
  Company Number: IT-ACTAVIS-2015-03063

PATIENT
  Age: 51 Year
  Sex: Female

DRUGS (1)
  1. PACLITAXEL ACTAVIS [Suspect]
     Active Substance: PACLITAXEL
     Indication: CERVIX NEOPLASM
     Dosage: 300 MG, CYCLICAL
     Route: 041
     Dates: start: 20150114

REACTIONS (3)
  - Chest discomfort [Recovered/Resolved]
  - Sense of oppression [Recovered/Resolved]
  - Flushing [Recovered/Resolved]

NARRATIVE: CASE EVENT DATE: 20150114
